FAERS Safety Report 26088951 (Version 1)
Quarter: 2025Q4

REPORT INFORMATION
  Report Type: Spontaneous
  Country: EU (occurrence: EU)
  Receive Date: 20251125
  Receipt Date: 20251125
  Transmission Date: 20260118
  Serious: Yes (Other)
  Sender: MYLAN
  Company Number: EU-SANDOZ-SDZ2025AT082841

PATIENT
  Age: 41 Year
  Sex: Female

DRUGS (4)
  1. IRON SUCROSE [Suspect]
     Active Substance: IRON SUCROSE
     Indication: Product used for unknown indication
     Dosage: 1000 MILLIGRAM (SOLUTION FOR INJECTION/INFUSION)
  2. IRON SUCROSE [Suspect]
     Active Substance: IRON SUCROSE
     Dosage: 1000 MILLIGRAM (SOLUTION FOR INJECTION/INFUSION)
     Route: 065
  3. IRON SUCROSE [Suspect]
     Active Substance: IRON SUCROSE
     Dosage: 1000 MILLIGRAM (SOLUTION FOR INJECTION/INFUSION)
     Route: 065
  4. IRON SUCROSE [Suspect]
     Active Substance: IRON SUCROSE
     Dosage: 1000 MILLIGRAM (SOLUTION FOR INJECTION/INFUSION)

REACTIONS (3)
  - Circulatory collapse [Recovering/Resolving]
  - Hypotension [Recovering/Resolving]
  - Cold sweat [Recovering/Resolving]
